FAERS Safety Report 5168361-6 (Version None)
Quarter: 2006Q4

REPORT INFORMATION
  Report Type: 
  Country: None (occurrence: None)
  Receive Date: 20061208
  Receipt Date: 20061129
  Transmission Date: 20070319
  Serious: Yes (Death, Hospitalization)
  Sender: FDA-Public Use
  Company Number: AT-ABBOTT-06P-009-0351867-00

PATIENT
  Age: 83 Year
  Sex: Female
  Weight: 72 kg

DRUGS (14)
  1. ZEMPLAR [Suspect]
     Indication: HYPERPARATHYROIDISM
     Route: 042
     Dates: start: 20060808, end: 20061007
  2. ZEMPLAR [Suspect]
     Route: 042
     Dates: start: 20060530, end: 20060807
  3. LANSOPRAZOLE [Concomitant]
     Indication: DRUG USE FOR UNKNOWN INDICATION
     Dates: start: 20020516, end: 20061007
  4. FUROSEMIDE [Concomitant]
     Indication: DRUG USE FOR UNKNOWN INDICATION
     Dates: start: 20020516, end: 20061007
  5. PROTHIPENDYL HYDROCHLORIDE [Concomitant]
     Indication: DRUG USE FOR UNKNOWN INDICATION
     Dates: start: 20020516, end: 20061007
  6. MADOPAR [Concomitant]
     Indication: DRUG USE FOR UNKNOWN INDICATION
     Dosage: 50/12.5 MG
     Dates: start: 20020516, end: 20061007
  7. SORMORDREN [Concomitant]
     Indication: DRUG USE FOR UNKNOWN INDICATION
     Dates: start: 20020516, end: 20061007
  8. FORADIL DA [Concomitant]
     Indication: DRUG USE FOR UNKNOWN INDICATION
     Dosage: 1 HUB
     Dates: start: 20020516, end: 20061007
  9. NULYTELY [Concomitant]
     Indication: DRUG USE FOR UNKNOWN INDICATION
     Dosage: 1 BAG
     Dates: start: 20020516, end: 20061007
  10. PRAMIPEXOLE DIHYDROCHLORIDE [Concomitant]
     Indication: DRUG USE FOR UNKNOWN INDICATION
     Dates: start: 20020516, end: 20061007
  11. TRAMAL RETARD [Concomitant]
     Indication: DRUG USE FOR UNKNOWN INDICATION
     Dates: start: 20020516, end: 20061007
  12. LORNOXICAM [Concomitant]
     Indication: DRUG USE FOR UNKNOWN INDICATION
     Dates: start: 20060411, end: 20061007
  13. ESOMEPRAZOLE MAGNESIUM [Concomitant]
     Indication: DRUG USE FOR UNKNOWN INDICATION
     Dates: start: 20060923, end: 20061007
  14. ENOXAPARIN SODIUM [Concomitant]
     Indication: DRUG USE FOR UNKNOWN INDICATION
     Dates: start: 20060923, end: 20061007

REACTIONS (4)
  - ABDOMINAL OPERATION [None]
  - AZOTAEMIA [None]
  - BLOOD PARATHYROID HORMONE INCREASED [None]
  - SEPSIS [None]
